FAERS Safety Report 11651541 (Version 4)
Quarter: 2015Q4

REPORT INFORMATION
  Report Type: Spontaneous
  Country: JP (occurrence: JP)
  Receive Date: 20151022
  Receipt Date: 20151202
  Transmission Date: 20160304
  Serious: Yes (Other)
  Sender: FDA-Public Use
  Company Number: PHJP2015JP018013

PATIENT
  Age: 76 Year
  Sex: Female

DRUGS (5)
  1. URSODEOXYCHOLIC ACID [Concomitant]
     Active Substance: URSODIOL
     Indication: BILIARY CIRRHOSIS PRIMARY
     Dosage: 100 MG, TID
     Route: 048
  2. BEZATOL [Concomitant]
     Active Substance: BEZAFIBRATE
     Indication: PRODUCT USED FOR UNKNOWN INDICATION
     Dosage: 200 MG, QD
     Route: 048
  3. NEORAL [Suspect]
     Active Substance: CYCLOSPORINE
     Indication: PSORIASIS
     Dosage: 100 MG, QD ((25 TO 100 MG QD ADJUSTED ACCORDING TO THE SYMPTOM))
     Route: 048
     Dates: start: 2001, end: 20150722
  4. TIGASON [Suspect]
     Active Substance: ETRETINATE
     Indication: PSORIASIS
     Dosage: 10 MG, QD
     Route: 048
     Dates: start: 20150826
  5. FEBURIC [Concomitant]
     Active Substance: FEBUXOSTAT
     Indication: PRODUCT USED FOR UNKNOWN INDICATION
     Dosage: 5 MG, QD
     Route: 048

REACTIONS (5)
  - Adrenal neoplasm [Unknown]
  - Rash [Not Recovered/Not Resolved]
  - Renal impairment [Recovering/Resolving]
  - Mycobacterium avium complex infection [Unknown]
  - Creatinine renal clearance increased [Not Recovered/Not Resolved]

NARRATIVE: CASE EVENT DATE: 20150603
